FAERS Safety Report 4979896-0 (Version None)
Quarter: 2006Q2

REPORT INFORMATION
  Report Type: 
  Country: None (occurrence: None)
  Receive Date: 20060421
  Receipt Date: 20060111
  Transmission Date: 20061013
  Serious: Yes (Hospitalization)
  Sender: FDA-Public Use
  Company Number: US-MERCK-0601USA01575

PATIENT
  Age: 69 Year
  Sex: Male
  Weight: 102 kg

DRUGS (14)
  1. VIOXX [Suspect]
     Indication: MONARTHRITIS
     Route: 048
     Dates: start: 20000731, end: 20040919
  2. ACTOS [Concomitant]
     Indication: DIABETES MELLITUS
     Route: 065
  3. AVELOX [Concomitant]
     Route: 065
  4. BIAXIN [Concomitant]
     Route: 065
  5. CEPHALEXIN [Concomitant]
     Route: 065
  6. CIMETIDINE [Concomitant]
     Indication: GASTROOESOPHAGEAL REFLUX DISEASE
     Route: 065
  7. NAPROXEN [Concomitant]
     Indication: PAIN
     Route: 065
  8. NAPROXEN [Concomitant]
     Indication: INFLAMMATION
     Route: 065
  9. NEXIUM [Concomitant]
     Indication: GASTROOESOPHAGEAL REFLUX DISEASE
     Route: 065
  10. ACETAMINOPHEN AND PROPOXYPHENE NAPSYLATE [Concomitant]
     Route: 065
  11. SINGULAIR [Concomitant]
     Indication: HYPERSENSITIVITY
     Route: 065
  12. SINGULAIR [Concomitant]
     Indication: ASTHMA
     Route: 065
  13. TAMIFLU [Concomitant]
     Route: 065
  14. ZITHROMAX [Concomitant]
     Route: 065

REACTIONS (6)
  - DIABETES MELLITUS [None]
  - GASTROOESOPHAGEAL REFLUX DISEASE [None]
  - INJURY [None]
  - MYOCARDIAL INFARCTION [None]
  - SPINAL DISORDER [None]
  - ULCER [None]
